FAERS Safety Report 4871127-5 (Version None)
Quarter: 2006Q1

REPORT INFORMATION
  Report Type: 
  Country: None (occurrence: None)
  Receive Date: 20060103
  Receipt Date: 20051219
  Transmission Date: 20060701
  Serious: Yes (Hospitalization)
  Sender: FDA-Public Use
  Company Number: NL-BOEHRINGER INGELHEIM PHARMACEUTICALS, INC.-2005-NL-00350NL

PATIENT
  Sex: Female
  Weight: 85 kg

DRUGS (8)
  1. DABIGATRAN (POST-TREATMENT) [Suspect]
     Indication: THROMBOSIS PROPHYLAXIS
     Route: 048
  2. ENOXAPARIN (POST-TREATMENT) [Suspect]
  3. SPIRIVA [Suspect]
     Indication: EMPHYSEMA
  4. TOLBUTAMIDE [Concomitant]
     Indication: EMPHYSEMA
  5. DIAZEPAM [Concomitant]
     Indication: INSOMNIA
  6. VENTOLIN [Concomitant]
     Indication: EMPHYSEMA
  7. METFORMINE [Concomitant]
     Indication: DIABETES MELLITUS
  8. RHINOCORT [Concomitant]
     Indication: EMPHYSEMA

REACTIONS (1)
  - ARRHYTHMIA [None]
